FAERS Safety Report 7219077-3 (Version None)
Quarter: 2011Q1

REPORT INFORMATION
  Report Type: 
  Country: None (occurrence: None)
  Receive Date: 20110111
  Receipt Date: 20110105
  Transmission Date: 20110831
  Serious: No
  Sender: FDA-Public Use
  Company Number: US-BIOGENIDEC-2011BI000733

PATIENT
  Age: 57 Year
  Sex: Female

DRUGS (1)
  1. AVONEX [Suspect]
     Indication: MULTIPLE SCLEROSIS
     Route: 030
     Dates: start: 20000913

REACTIONS (8)
  - INCREASED UPPER AIRWAY SECRETION [None]
  - HYPERTENSION [None]
  - COUGH [None]
  - RALES [None]
  - RESPIRATORY TRACT CONGESTION [None]
  - PNEUMONIA [None]
  - CHEST DISCOMFORT [None]
  - BRONCHITIS [None]
